FAERS Safety Report 4776547-5 (Version None)
Quarter: 2005Q3

REPORT INFORMATION
  Report Type: 
  Country: None (occurrence: None)
  Receive Date: 20050922
  Receipt Date: 20040728
  Transmission Date: 20060218
  Serious: Yes (Hospitalization)
  Sender: FDA-Public Use
  Company Number: FR-MERCK-0407FRA00078

PATIENT
  Age: 40 Year
  Sex: Male

DRUGS (3)
  1. PRIMAXIN [Suspect]
     Indication: LUNG INFECTION
     Route: 042
     Dates: start: 20040612
  2. VORICONAZOLE [Suspect]
     Indication: BRONCHOPULMONARY ASPERGILLOSIS
     Route: 048
     Dates: start: 20040414, end: 20040703
  3. TRAMADOL HYDROCHLORIDE [Suspect]
     Indication: PROCEDURAL PAIN
     Route: 048
     Dates: start: 20040627, end: 20040703

REACTIONS (5)
  - CONVULSION [None]
  - HEPATITIS [None]
  - LUNG INFECTION [None]
  - PROCEDURAL PAIN [None]
  - PROTHROMBIN TIME RATIO DECREASED [None]
